FAERS Safety Report 14844178 (Version 1)
Quarter: 2018Q2

REPORT INFORMATION
  Report Type: Spontaneous
  Country: US (occurrence: US)
  Receive Date: 20180503
  Receipt Date: 20180503
  Transmission Date: 20180711
  Serious: Yes (Hospitalization, Other)
  Sender: FDA-Public Use
  Company Number: US-BAUSCH-BL-2018-012363

PATIENT
  Age: 23 Year
  Sex: Male

DRUGS (6)
  1. LEVOTHYROXINE. [Concomitant]
     Active Substance: LEVOTHYROXINE
     Indication: HYPOTHYROIDISM
  2. MESALAZINE [Suspect]
     Active Substance: MESALAMINE
     Dosage: LONG-ACTING PREPARATION FOR EASIER DOSING
     Route: 065
  3. PREDNISONE. [Concomitant]
     Active Substance: PREDNISONE
     Dosage: TAPERED BY 5 MG EACH WEEK FOR 12 WEEKS; 5 MG TAPER WAS DECREASED TO A 10 MG TAPER
  4. PREDNISONE. [Concomitant]
     Active Substance: PREDNISONE
     Indication: HYPOTHYROIDISM
     Dosage: DOSE REDUCED
  5. MESALAZINE [Suspect]
     Active Substance: MESALAMINE
     Indication: COLITIS ULCERATIVE
     Dosage: THRICE A DAY
     Route: 048
  6. MESALAZINE [Suspect]
     Active Substance: MESALAMINE
     Dosage: LONG-ACTING PREPARATION FOR EASIER DOSING
     Route: 065

REACTIONS (2)
  - Myocarditis [Recovering/Resolving]
  - Cardiotoxicity [Recovering/Resolving]
